FAERS Safety Report 14744777 (Version 1)
Quarter: 2018Q2

REPORT INFORMATION
  Report Type: Spontaneous
  Country: IE (occurrence: IE)
  Receive Date: 20180411
  Receipt Date: 20180411
  Transmission Date: 20180711
  Serious: Yes (Other)
  Sender: FDA-Public Use
  Company Number: IE-AXELLIA-001596

PATIENT
  Age: 96 Year
  Sex: Male

DRUGS (2)
  1. ORAMORPH [Interacting]
     Active Substance: MORPHINE SULFATE
     Indication: PAIN IN EXTREMITY
  2. VANCOMYCIN [Suspect]
     Active Substance: VANCOMYCIN
     Indication: STAPHYLOCOCCAL INFECTION
     Dosage: WITH ADJUSTMENT TO RENAL DOSE

REACTIONS (2)
  - Drug interaction [Unknown]
  - Anaphylactoid reaction [Recovering/Resolving]
